FAERS Safety Report 11405267 (Version 2)
Quarter: 2015Q4

REPORT INFORMATION
  Report Type: Spontaneous
  Country: GB (occurrence: GB)
  Receive Date: 20150821
  Receipt Date: 20151028
  Transmission Date: 20160304
  Serious: Yes (Other)
  Sender: FDA-Public Use
  Company Number: GB-BAYER-2015-400651

PATIENT
  Age: 67 Year
  Sex: Male

DRUGS (1)
  1. STIVARGA [Suspect]
     Active Substance: REGORAFENIB
     Indication: METASTATIC NEOPLASM
     Dosage: DAILY DOSE 160 MG
     Route: 048

REACTIONS (4)
  - Infection [None]
  - Respiratory tract congestion [None]
  - Dyspnoea exertional [None]
  - Productive cough [None]

NARRATIVE: CASE EVENT DATE: 2015
